FAERS Safety Report 5852064-6 (Version None)
Quarter: 2008Q3

REPORT INFORMATION
  Report Type: 
  Country: None (occurrence: None)
  Receive Date: 20080819
  Receipt Date: 20080819
  Transmission Date: 20090109
  Serious: Yes (Other)
  Sender: FDA-Public Use
  Company Number: None

PATIENT
  Sex: Female
  Weight: 113.3993 kg

DRUGS (1)
  1. LYRICA [Suspect]
     Indication: FIBROMYALGIA
     Dosage: 50MG 3 TIMES A DAY ORAL
     Route: 048
     Dates: start: 20080813, end: 20080815

REACTIONS (2)
  - CONDITION AGGRAVATED [None]
  - PAIN [None]
